FAERS Safety Report 8674182 (Version 2)
Quarter: 2012Q4

REPORT INFORMATION
  Report Type: 
  Country: TR (occurrence: TR)
  Receive Date: 20120719
  Receipt Date: 20120917
  Transmission Date: 20130627
  Serious: Yes (Other)
  Sender: FDA-Public Use
  Company Number: TR-GILEAD-2012-0057412

PATIENT
  Age: 66 Year
  Sex: Male

DRUGS (2)
  1. TRUVADA [Suspect]
     Indication: HIV INFECTION
     Dosage: 1 DF, QD
  2. EFAVIRENZ [Concomitant]
     Dosage: 600 mg, UNK

REACTIONS (1)
  - Osteoporosis [Unknown]
